FAERS Safety Report 8390248-6 (Version None)
Quarter: 2012Q2

REPORT INFORMATION
  Report Type: 
  Country: None (occurrence: None)
  Receive Date: 20120529
  Receipt Date: 20120518
  Transmission Date: 20120825
  Serious: Yes (Other)
  Sender: FDA-Public Use
  Company Number: CO-PFIZER INC-2012124758

PATIENT
  Age: 17 Year
  Sex: Female

DRUGS (2)
  1. GENOTROPIN [Suspect]
     Indication: TURNER'S SYNDROME
     Dosage: UNK
     Dates: start: 20050101, end: 20111101
  2. CALCIUM [Concomitant]
     Dosage: 600 MG, 1X/DAY
     Route: 048
     Dates: start: 20090101

REACTIONS (3)
  - BLOOD CHOLESTEROL INCREASED [None]
  - OSTEOPOROSIS [None]
  - WEIGHT INCREASED [None]
